FAERS Safety Report 22001461 (Version 2)
Quarter: 2023Q2

REPORT INFORMATION
  Report Type: Spontaneous
  Country: JP (occurrence: JP)
  Receive Date: 20230216
  Receipt Date: 20230525
  Transmission Date: 20230721
  Serious: Yes (Other)
  Sender: FDA-Public Use
  Company Number: JP-BAYER-2023A015211

PATIENT
  Age: 72 Year
  Sex: Male

DRUGS (10)
  1. ASPIRIN [Suspect]
     Active Substance: ASPIRIN
     Dosage: 200 MG
     Route: 048
     Dates: start: 20221023, end: 20221023
  2. IOPAMIDOL [Suspect]
     Active Substance: IOPAMIDOL
     Indication: Angiocardiogram
     Route: 065
  3. ISOSORBIDE DINITRATE [Concomitant]
     Active Substance: ISOSORBIDE DINITRATE
     Route: 065
  4. DILTIAZEM HYDROCHLORIDE [Concomitant]
     Active Substance: DILTIAZEM HYDROCHLORIDE
     Indication: Prinzmetal angina
     Dosage: 100 MG
     Route: 048
  5. DILTIAZEM HYDROCHLORIDE [Concomitant]
     Active Substance: DILTIAZEM HYDROCHLORIDE
     Dosage: 100MG
     Route: 048
  6. DILTIAZEM HYDROCHLORIDE [Concomitant]
     Active Substance: DILTIAZEM HYDROCHLORIDE
     Dosage: 100MG
     Route: 048
  7. NICORANDIL [Concomitant]
     Active Substance: NICORANDIL
     Indication: Prinzmetal angina
     Dosage: 5 MG
     Route: 048
  8. NICORANDIL [Concomitant]
     Active Substance: NICORANDIL
     Dosage: 5MG
     Route: 048
  9. NICORANDIL [Concomitant]
     Active Substance: NICORANDIL
     Dosage: 5MG
     Route: 048
  10. FEXOFENADINE HYDROCHLORIDE [Concomitant]
     Active Substance: FEXOFENADINE HYDROCHLORIDE
     Indication: Erythema

REACTIONS (3)
  - Anaphylactic shock [Recovering/Resolving]
  - Prinzmetal angina [Recovering/Resolving]
  - Kounis syndrome [Recovering/Resolving]
